FAERS Safety Report 23701194 (Version 1)
Quarter: 2024Q2

REPORT INFORMATION
  Report Type: Report from Study
  Country: NL (occurrence: NL)
  Receive Date: 20240403
  Receipt Date: 20240403
  Transmission Date: 20240715
  Serious: Yes (Hospitalization, Other)
  Sender: FDA-Public Use
  Company Number: NL-TEVA-VS-3175038

PATIENT
  Age: 35 Year
  Sex: Female

DRUGS (1)
  1. COPAXONE [Suspect]
     Active Substance: GLATIRAMER ACETATE
     Indication: Relapsing multiple sclerosis
     Dosage: TIME INTERVAL: 0.33333333 WEEKS: DOSAGE: 40 MG/ML
     Route: 058

REACTIONS (3)
  - Gait inability [Unknown]
  - Urinary retention [Unknown]
  - Pain in extremity [Unknown]
